FAERS Safety Report 10415691 (Version 1)
Quarter: 2014Q3

REPORT INFORMATION
  Report Type: Spontaneous
  Country: US (occurrence: US)
  Receive Date: 20140828
  Receipt Date: 20140828
  Transmission Date: 20150326
  Serious: Yes (Other)
  Sender: FDA-Public Use
  Company Number: US-SA-2014SA112717

PATIENT
  Sex: Female

DRUGS (1)
  1. MULTAQ [Suspect]
     Active Substance: DRONEDARONE
     Indication: PRODUCT USED FOR UNKNOWN INDICATION
     Route: 065

REACTIONS (4)
  - Atrial tachycardia [Recovered/Resolved]
  - Atrial fibrillation [Recovered/Resolved]
  - Chronic obstructive pulmonary disease [Recovered/Resolved]
  - Electrocardiogram QT prolonged [Recovered/Resolved]
